FAERS Safety Report 13608565 (Version 1)
Quarter: 2017Q2

REPORT INFORMATION
  Report Type: Spontaneous
  Country: FR (occurrence: FR)
  Receive Date: 20170602
  Receipt Date: 20170602
  Transmission Date: 20170830
  Serious: Yes (Death, Other)
  Sender: FDA-Public Use
  Company Number: FR-PFIZER INC-HQWYE905808SEP04

PATIENT
  Age: 60 Year
  Sex: Female

DRUGS (6)
  1. VISCERALGINE FORTE /01377701/ [Interacting]
     Active Substance: METAMIZOLE SODIUM\TIEMONIUM METHYLSULFATE
     Dosage: 3 DF, DAILY
  2. AZATHIOPRINE. [Concomitant]
     Active Substance: AZATHIOPRINE
     Dosage: 75 MG, DAILY
     Dates: start: 19951201, end: 19980814
  3. METHOTREXATE. [Suspect]
     Active Substance: METHOTREXATE
     Indication: CROHN^S DISEASE
     Dosage: 25 MG, UNK
     Route: 030
     Dates: start: 19980821, end: 19980821
  4. AZATHIOPRINE. [Concomitant]
     Active Substance: AZATHIOPRINE
     Indication: CROHN^S DISEASE
     Dosage: 100 MG, DAILY
     Dates: start: 19950501, end: 19951201
  5. SOLU-MEDROL [Concomitant]
     Active Substance: METHYLPREDNISOLONE SODIUM SUCCINATE
     Indication: CROHN^S DISEASE
     Dosage: 40 MG, DAILY
     Route: 042
  6. VISCERALGINE FORTE /01377701/ [Interacting]
     Active Substance: METAMIZOLE SODIUM\TIEMONIUM METHYLSULFATE
     Dosage: 3 DF, DAILY
     Route: 042

REACTIONS (5)
  - Acute respiratory distress syndrome [Fatal]
  - Bone marrow failure [Unknown]
  - Hypovolaemic shock [Fatal]
  - Drug interaction [Unknown]
  - Septic shock [Fatal]

NARRATIVE: CASE EVENT DATE: 19980824
